FAERS Safety Report 8859948 (Version 3)
Quarter: 2013Q1

REPORT INFORMATION
  Report Type: Spontaneous
  Country: US (occurrence: US)
  Receive Date: 20121025
  Receipt Date: 20130103
  Transmission Date: 20140127
  Serious: Yes (Other)
  Sender: FDA-Public Use
  Company Number: US-BRISTOL-MYERS SQUIBB COMPANY-17043126

PATIENT
  Age: 64 Year
  Sex: Female
  Weight: 77.1 kg

DRUGS (3)
  1. KENALOG-40 INJ [Suspect]
     Indication: INTERVERTEBRAL DISC PROTRUSION
     Dates: start: 20120326
  2. BUPIVACAINE [Suspect]
  3. LIDOCAINE [Suspect]

REACTIONS (4)
  - Flushing [Recovered/Resolved]
  - Blood glucose fluctuation [Recovered/Resolved]
  - Anxiety [Recovered/Resolved]
  - Alopecia [Not Recovered/Not Resolved]
